FAERS Safety Report 8612353-9 (Version None)
Quarter: 2012Q3

REPORT INFORMATION
  Report Type: 
  Country: None (occurrence: None)
  Receive Date: 20120822
  Receipt Date: 20120809
  Transmission Date: 20120928
  Serious: No
  Sender: FDA-Public Use
  Company Number: US-ASTRAZENECA-2012SE56835

PATIENT
  Age: 88 Year
  Sex: Female

DRUGS (1)
  1. SYMBICORT [Suspect]
     Dosage: UNKNOWN, UNKNOWN
     Route: 055

REACTIONS (3)
  - SPEECH DISORDER [None]
  - COUGH [None]
  - INCREASED UPPER AIRWAY SECRETION [None]
